FAERS Safety Report 7578161-5 (Version None)
Quarter: 2011Q2

REPORT INFORMATION
  Report Type: 
  Country: None (occurrence: None)
  Receive Date: 20110628
  Receipt Date: 20110616
  Transmission Date: 20111010
  Serious: Yes (Other)
  Sender: FDA-Public Use
  Company Number: A0931670A

PATIENT
  Sex: Male

DRUGS (3)
  1. ADVAIR DISKUS 100/50 [Suspect]
     Indication: COUGH
     Route: 065
  2. VENTOLIN HFA [Concomitant]
     Route: 065
     Dates: start: 20090501
  3. SINGULAIR [Concomitant]
     Dosage: 10MG PER DAY
     Dates: start: 20100710

REACTIONS (6)
  - OVERDOSE [None]
  - NOCTURNAL DYSPNOEA [None]
  - DYSPNOEA [None]
  - COUGH [None]
  - PRODUCT QUALITY ISSUE [None]
  - DRUG INEFFECTIVE [None]
